FAERS Safety Report 6639095-3 (Version None)
Quarter: 2010Q1

REPORT INFORMATION
  Report Type: 
  Country: None (occurrence: None)
  Receive Date: 20100317
  Receipt Date: 20100305
  Transmission Date: 20100710
  Serious: Yes (Hospitalization, Other)
  Sender: FDA-Public Use
  Company Number: US-TYCO HEALTHCARE/MALLINCKRODT-T200901829

PATIENT
  Sex: Female
  Weight: 68.934 kg

DRUGS (25)
  1. OPTIMARK [Suspect]
     Indication: ANGIOGRAM
     Dosage: UNK
     Route: 042
     Dates: start: 20060429, end: 20060429
  2. OPTIMARK [Suspect]
     Indication: VENOGRAM
  3. HYDRALAZINE HCL [Concomitant]
     Dosage: 100 MG (2 TABLETS), TID
  4. COZAAR [Concomitant]
     Indication: HYPERTENSION
     Dosage: 50 MG, QD
  5. IMDUR [Concomitant]
     Dosage: 30 MG, QD
  6. CLONIDINE [Concomitant]
     Dosage: 0.1 MG, BID
  7. PHOSLO [Concomitant]
     Dosage: 667 MG, TID (1 TABLET WITH MEALS)
  8. RENAGEL                            /01459901/ [Concomitant]
     Indication: DIALYSIS
     Dosage: 1600 MG, TID
  9. PREVACID [Concomitant]
     Dosage: 30 MG, QD (1 TABLET BEFORE BREAKFAST)
  10. ACTOS [Concomitant]
     Indication: DIABETES MELLITUS
     Dosage: 45 MG, QD
  11. PROCARDIA XL [Concomitant]
     Dosage: 60 MG (1 TABLET), BID
  12. LOPRESSOR [Concomitant]
     Dosage: 100 MG, BID
  13. ZAROXOLYN [Concomitant]
     Indication: HYPERTENSION
     Dosage: 20 MG, (2 TABLETS) BID
  14. LEVAQUIN [Concomitant]
     Dosage: 500 MG (1 TABLET), QD
  15. FLAGYL [Concomitant]
     Dosage: 250 MG, TID (1 TABLET Q8H)
  16. METOPROLOL TARTRATE [Concomitant]
     Indication: HYPERTENSION
     Dosage: 100 MG, BID
  17. REGLAN [Concomitant]
     Dosage: 5 MG, A.C AND H.S. (1 TABLET A.C. AND H.S.)
  18. SENOKOT [Concomitant]
     Dosage: 1 TABLET, BID
  19. ISORDIL [Concomitant]
     Dosage: 20 MG, BID
  20. PERCOCET [Concomitant]
     Indication: PAIN
     Dosage: 1 TABLET, EVERY 8 HOURS
  21. EPOGEN [Concomitant]
     Indication: ANAEMIA
     Dosage: 10000 IU, ON DIALYSIS DAYS
     Route: 058
  22. HUMULIN R [Concomitant]
     Dosage: A.C AND H.S. SLIDING SCALE
  23. AMBIEN [Concomitant]
     Dosage: 5 MG, QD (1 TABLET H.S)
  24. TRAMADOL HCL [Concomitant]
     Dosage: 50 MG, QID
  25. ASPIRIN [Concomitant]
     Dosage: 81 MG, QD

REACTIONS (31)
  - ARTERIOSCLEROSIS CORONARY ARTERY [None]
  - ASCITES [None]
  - BREAST MASS [None]
  - BUNDLE BRANCH BLOCK LEFT [None]
  - CARDIAC FAILURE CONGESTIVE [None]
  - CLUBBING [None]
  - EUSTACHIAN TUBE DYSFUNCTION [None]
  - GASTROENTERITIS [None]
  - GOITRE [None]
  - HAEMATEMESIS [None]
  - HAEMATOMA [None]
  - HAEMORRHOIDS [None]
  - HEADACHE [None]
  - HYPERKALAEMIA [None]
  - MYOCARDIAL INFARCTION [None]
  - NEPHROGENIC SYSTEMIC FIBROSIS [None]
  - OCCULT BLOOD POSITIVE [None]
  - OEDEMA PERIPHERAL [None]
  - OESOPHAGITIS [None]
  - OFF LABEL USE [None]
  - ORTHOSTATIC HYPOTENSION [None]
  - OSTEOARTHRITIS [None]
  - PANCREATITIS CHRONIC [None]
  - RENAL CYST [None]
  - RHABDOMYOLYSIS [None]
  - SCLERODERMA [None]
  - SINUS BRADYCARDIA [None]
  - SINUS TACHYCARDIA [None]
  - SUBCUTANEOUS NODULE [None]
  - VASCULAR CALCIFICATION [None]
  - VOMITING [None]
